FAERS Safety Report 13072895 (Version 2)
Quarter: 2018Q1

REPORT INFORMATION
  Report Type: Spontaneous
  Country: US (occurrence: US)
  Receive Date: 20161229
  Receipt Date: 20180115
  Transmission Date: 20180508
  Serious: Yes (Other)
  Sender: FDA-Public Use
  Company Number: US-SA-2016SA219821

PATIENT
  Age: 64 Year
  Sex: Female
  Weight: 91 kg

DRUGS (10)
  1. TAXOTERE [Suspect]
     Active Substance: DOCETAXEL
     Indication: BREAST CANCER FEMALE
     Route: 051
     Dates: start: 20120215, end: 20120215
  2. SYNTHROID [Concomitant]
     Active Substance: LEVOTHYROXINE SODIUM
     Route: 065
     Dates: start: 201110
  3. CALCIUM [Concomitant]
     Active Substance: CALCIUM
     Route: 065
     Dates: start: 2003
  4. PANTHENOL/RETINOL/THIAMINE HYDROCHLORIDE/ASCORBIC ACID/ERGOCALCIFEROL/FOLIC ACID/RIBOFLAVIN/NICOTINA [Concomitant]
     Route: 065
     Dates: start: 2003
  5. TAXOTERE [Suspect]
     Active Substance: DOCETAXEL
     Indication: BREAST CANCER FEMALE
     Route: 051
     Dates: start: 20120530, end: 20120530
  6. CARBOPLATIN. [Concomitant]
     Active Substance: CARBOPLATIN
     Route: 065
  7. ALENDRONATE [Concomitant]
     Active Substance: ALENDRONATE SODIUM
     Route: 065
     Dates: start: 2003
  8. NEULASTA [Concomitant]
     Active Substance: PEGFILGRASTIM
  9. TRASTUZUMAB. [Concomitant]
     Active Substance: TRASTUZUMAB
  10. LEVOTHYROXINE. [Concomitant]
     Active Substance: LEVOTHYROXINE
     Route: 065
     Dates: start: 201110

REACTIONS (6)
  - Alopecia [Not Recovered/Not Resolved]
  - Pain [Unknown]
  - Psychological trauma [Unknown]
  - Emotional distress [Unknown]
  - Impaired quality of life [Unknown]
  - Anxiety [Unknown]

NARRATIVE: CASE EVENT DATE: 201211
